FAERS Safety Report 15473674 (Version 1)
Quarter: 2018Q4

REPORT INFORMATION
  Report Type: Spontaneous
  Country: BE (occurrence: BE)
  Receive Date: 20181008
  Receipt Date: 20181008
  Transmission Date: 20190205
  Serious: Yes (Other)
  Sender: FDA-Public Use
  Company Number: BE-009507513-1806BEL013010

PATIENT
  Age: 34 Year
  Sex: Female

DRUGS (6)
  1. PROPOLIPID [Suspect]
     Active Substance: PROPOFOL
     Indication: INDUCTION OF ANAESTHESIA
     Dosage: 200 MG
     Route: 042
     Dates: start: 2018, end: 2018
  2. VENTOLIN [Concomitant]
     Active Substance: ALBUTEROL SULFATE
     Dosage: UNK, IF NEEDED
  3. ULTIVA [Suspect]
     Active Substance: REMIFENTANIL HYDROCHLORIDE
     Indication: INDUCTION OF ANAESTHESIA
     Dosage: 100 MG
     Route: 042
     Dates: start: 2018, end: 2018
  4. ESMERON [Suspect]
     Active Substance: ROCURONIUM BROMIDE
     Indication: INDUCTION OF ANAESTHESIA
     Dosage: 40 MG
     Route: 042
     Dates: start: 2018, end: 2018
  5. MIDAZOLAM [Suspect]
     Active Substance: MIDAZOLAM HYDROCHLORIDE
     Indication: INDUCTION OF ANAESTHESIA
     Dosage: 3 MG
     Route: 042
     Dates: start: 2018, end: 2018
  6. LINISOL [Suspect]
     Active Substance: LIDOCAINE HYDROCHLORIDE
     Indication: INDUCTION OF ANAESTHESIA
     Dosage: 100 MG
     Route: 042

REACTIONS (3)
  - Type IV hypersensitivity reaction [Recovering/Resolving]
  - Type III immune complex mediated reaction [Recovering/Resolving]
  - Anaphylactic reaction [Recovering/Resolving]

NARRATIVE: CASE EVENT DATE: 2018
